FAERS Safety Report 4516282-1 (Version None)
Quarter: 2004Q4

REPORT INFORMATION
  Report Type: 
  Country: None (occurrence: None)
  Receive Date: 20041202
  Receipt Date: 20041118
  Transmission Date: 20050328
  Serious: Yes (Hospitalization)
  Sender: FDA-Public Use
  Company Number: AU-JNJFOC-20041106758

PATIENT
  Age: 46 Year
  Sex: Male

DRUGS (5)
  1. TRAMADOL HCL [Suspect]
     Route: 049
  2. PSEUDOEPHEDRINE HCL [Interacting]
     Indication: DRUG USE FOR UNKNOWN INDICATION
     Route: 049
  3. DIAZEPAM [Concomitant]
  4. CELECOXIB [Concomitant]
  5. ACETAMINOPHEN [Concomitant]
     Indication: DRUG USE FOR UNKNOWN INDICATION

REACTIONS (3)
  - COLITIS ISCHAEMIC [None]
  - CONSTIPATION [None]
  - HELICOBACTER PYLORI IDENTIFICATION TEST POSITIVE [None]
